FAERS Safety Report 11131756 (Version 1)
Quarter: 2015Q2

REPORT INFORMATION
  Report Type: Spontaneous
  Country: US (occurrence: None)
  Receive Date: 20150521
  Receipt Date: 20150521
  Transmission Date: 20150821
  Serious: No
  Sender: FDA-Public Use
  Company Number: None

PATIENT
  Age: 62 Year
  Sex: Female
  Weight: 79.38 kg

DRUGS (15)
  1. SOLU-MEDROL [Suspect]
     Active Substance: METHYLPREDNISOLONE SODIUM SUCCINATE
     Indication: INFLAMMATION
     Dosage: 1GM/100ML NS ?ONCE DAILY?INTO A VEIN
     Route: 042
     Dates: start: 20150512, end: 20150516
  2. AMANTADINE [Concomitant]
     Active Substance: AMANTADINE
  3. VITAMIN D3 [Concomitant]
     Active Substance: CHOLECALCIFEROL
  4. BIOTIN [Concomitant]
     Active Substance: BIOTIN
  5. SOLU-MEDROL [Suspect]
     Active Substance: METHYLPREDNISOLONE SODIUM SUCCINATE
     Indication: MULTIPLE SCLEROSIS RELAPSE
     Dosage: 1GM/100ML NS ?ONCE DAILY?INTO A VEIN
     Route: 042
     Dates: start: 20150512, end: 20150516
  6. EVOXAC [Concomitant]
     Active Substance: CEVIMELINE HYDROCHLORIDE
  7. MOVE FREE ULTRA [Concomitant]
  8. GILENYA [Concomitant]
     Active Substance: FINGOLIMOD HYDROCHLORIDE
  9. PLAQUENIL [Concomitant]
     Active Substance: HYDROXYCHLOROQUINE SULFATE
  10. VITAMIN B12 [Concomitant]
     Active Substance: CYANOCOBALAMIN
  11. GABAPENTIN. [Concomitant]
     Active Substance: GABAPENTIN
  12. RESTASIS [Concomitant]
     Active Substance: CYCLOSPORINE
  13. CRANBERY EXTRACT [Concomitant]
  14. MEGA RED [Concomitant]
  15. MELATONIN [Concomitant]
     Active Substance: MELATONIN

REACTIONS (2)
  - Tenderness [None]
  - Swelling [None]

NARRATIVE: CASE EVENT DATE: 20150518
